FAERS Safety Report 5410060-7 (Version None)
Quarter: 2007Q3

REPORT INFORMATION
  Report Type: 
  Country: None (occurrence: None)
  Receive Date: 20070713
  Receipt Date: 20070402
  Transmission Date: 20080115
  Serious: Yes (Other)
  Sender: FDA-Public Use
  Company Number: 2007SP001188

PATIENT
  Age: 61 Year
  Sex: Female
  Weight: 79.8331 kg

DRUGS (5)
  1. LUNESTA [Suspect]
     Indication: INSOMNIA
     Dosage: 2 MG; PRN; ORAL
     Route: 048
     Dates: start: 20060606, end: 20061024
  2. PEGASYS [Suspect]
     Indication: HEPATITIS C
     Dosage: 135 UG; QW; SUBCUTANEOUS
     Route: 058
     Dates: start: 20060314, end: 20060711
  3. COPEGUS [Suspect]
     Indication: HEPATITIS C
     Dosage: 200 MG; QD; ORA; 400 MG; QD; ORAL
     Route: 048
     Dates: start: 20060314, end: 20060725
  4. COPEGUS [Suspect]
     Indication: HEPATITIS C
     Dosage: 200 MG; QD; ORA; 400 MG; QD; ORAL
     Route: 048
     Dates: start: 20060314, end: 20060725
  5. EPOGEN [Concomitant]

REACTIONS (2)
  - DISORIENTATION [None]
  - NEUTROPENIA [None]
